FAERS Safety Report 24132535 (Version 1)
Quarter: 2024Q3

REPORT INFORMATION
  Report Type: Spontaneous
  Country: CZ (occurrence: CZ)
  Receive Date: 20240724
  Receipt Date: 20240724
  Transmission Date: 20241016
  Serious: Yes (Life-Threatening, Hospitalization, Other)
  Sender: BAYER
  Company Number: None

PATIENT
  Age: 70 Year

DRUGS (2)
  1. ULTRAVIST [Suspect]
     Active Substance: IOPROMIDE
     Indication: Computerised tomogram abdomen
     Dosage: UNK
     Dates: start: 20240711
  2. ULTRAVIST [Suspect]
     Active Substance: IOPROMIDE
     Indication: Urogram

REACTIONS (7)
  - Anaphylactic reaction [Recovering/Resolving]
  - Anal incontinence [Recovering/Resolving]
  - Urinary incontinence [Recovering/Resolving]
  - Rash [Recovering/Resolving]
  - Loss of consciousness [Recovering/Resolving]
  - Foaming at mouth [Recovering/Resolving]
  - Hypotension [Recovering/Resolving]

NARRATIVE: CASE EVENT DATE: 20240711
